FAERS Safety Report 4993106-X (Version None)
Quarter: 2006Q1

REPORT INFORMATION
  Report Type: 
  Country: None (occurrence: None)
  Receive Date: 20060313
  Receipt Date: 20060105
  Transmission Date: 20060701
  Serious: No
  Sender: FDA-Public Use
  Company Number: 2005-BP-20975BP

PATIENT
  Sex: Male

DRUGS (12)
  1. SPIRIVA [Suspect]
     Indication: CHRONIC OBSTRUCTIVE PULMONARY DISEASE
     Dosage: 18 MCG (18 MCG, QD), IH
     Route: 055
     Dates: start: 20051101
  2. SPIRIVA [Suspect]
     Indication: DYSPNOEA
     Dosage: 18 MCG (18 MCG, QD), IH
     Route: 055
     Dates: start: 20051101
  3. ADVAIR (SERETIDE) [Concomitant]
  4. AMITRIPTYLINE HCL [Concomitant]
  5. NEXIUM [Concomitant]
  6. DICLOFENAC (DICLOFENAC) [Concomitant]
  7. ISOSORBIDE (ISOSORBIDE) [Concomitant]
  8. METRONIDAZOLE [Concomitant]
  9. GURZCAK [Concomitant]
  10. DICYCLOMINE [Concomitant]
  11. GLYBURIDE AND METFORMIN HCL [Concomitant]
  12. TOPROL-XL [Concomitant]

REACTIONS (7)
  - ABDOMINAL PAIN [None]
  - ARTHRITIS [None]
  - COUGH [None]
  - DRUG INEFFECTIVE [None]
  - DRY MOUTH [None]
  - DYSPEPSIA [None]
  - DYSPNOEA [None]
